FAERS Safety Report 10216453 (Version 1)
Quarter: 2014Q2

REPORT INFORMATION
  Report Type: Spontaneous
  Country: US (occurrence: US)
  Receive Date: 20140604
  Receipt Date: 20140604
  Transmission Date: 20141212
  Serious: Yes (Hospitalization, Disabling, Other)
  Sender: FDA-Public Use
  Company Number: US-ACTAVIS-2014-11864

PATIENT
  Age: 34 Year
  Sex: Female

DRUGS (9)
  1. ALBUTEROL SULFATE (WATSON LABORATORIES) [Suspect]
     Indication: BRONCHITIS
     Dosage: 90 ?G, BID
     Route: 055
  2. ALBUTEROL SULFATE (WATSON LABORATORIES) [Suspect]
     Indication: ATYPICAL PNEUMONIA
  3. FLUOXETINE [Concomitant]
     Indication: PRODUCT USED FOR UNKNOWN INDICATION
     Dosage: 20 MG, UNKNOWN
     Route: 065
  4. AMITRIPTYLINE [Concomitant]
     Indication: PRODUCT USED FOR UNKNOWN INDICATION
     Dosage: 10 MG, UNKNOWN
     Route: 065
  5. SPIRONOLACTONE [Concomitant]
     Indication: PARALYSIS
     Dosage: 100 MG, DAILY
     Route: 065
  6. CEFIXIME [Concomitant]
     Indication: BRONCHITIS
     Dosage: 400 MG, UNKNOWN
     Route: 048
  7. CEFIXIME [Concomitant]
     Indication: ATYPICAL PNEUMONIA
  8. METHYLPREDNISOLONE [Concomitant]
     Indication: BRONCHITIS
     Dosage: 4-MG DOSE PACK
     Route: 065
  9. METHYLPREDNISOLONE [Concomitant]
     Indication: ATYPICAL PNEUMONIA

REACTIONS (4)
  - Paralysis [Recovered/Resolved]
  - Hypokalaemia [Recovered/Resolved]
  - Condition aggravated [Recovered/Resolved]
  - Tachycardia [Recovered/Resolved]
